FAERS Safety Report 13187357 (Version 1)
Quarter: 2017Q1

REPORT INFORMATION
  Report Type: Spontaneous
  Country: US (occurrence: US)
  Receive Date: 20170206
  Receipt Date: 20170206
  Transmission Date: 20170428
  Serious: No
  Sender: FDA-Public Use
  Company Number: PHEH2017US002905

PATIENT
  Sex: Female

DRUGS (1)
  1. FLUVASTATIN [Suspect]
     Active Substance: FLUVASTATIN SODIUM
     Indication: PRODUCT USED FOR UNKNOWN INDICATION
     Route: 065

REACTIONS (1)
  - Abdominal pain upper [Unknown]
